FAERS Safety Report 15911842 (Version 3)
Quarter: 2019Q1

REPORT INFORMATION
  Report Type: Report from Study
  Country: DE (occurrence: DE)
  Receive Date: 20190204
  Receipt Date: 20190308
  Transmission Date: 20190417
  Serious: Yes (Death, Hospitalization, Other)
  Sender: FDA-Public Use
  Company Number: PHHY2018DE138394

PATIENT
  Age: 46 Year
  Sex: Male
  Weight: 75 kg

DRUGS (56)
  1. TAFINLAR [Suspect]
     Active Substance: DABRAFENIB MESYLATE
     Dosage: 150 MG, BID (STOPPED ON 16 DEC 2018)
     Route: 048
     Dates: start: 20180707
  2. TRAMETINIB [Suspect]
     Active Substance: TRAMETINIB
     Indication: METASTATIC MALIGNANT MELANOMA
     Dosage: 2 MG, QD (STOPPED ON 16 DEC 2018)
     Route: 048
     Dates: start: 20180706
  3. TORASEMIDE [Concomitant]
     Active Substance: TORSEMIDE
     Indication: PERIPHERAL SWELLING
  4. LENDORMIN [Concomitant]
     Active Substance: BROTIZOLAM
     Indication: PRODUCT USED FOR UNKNOWN INDICATION
     Dosage: 1 OT, QD
     Route: 048
     Dates: start: 20180709, end: 20180709
  5. CLEXANE [Concomitant]
     Active Substance: ENOXAPARIN SODIUM
     Indication: PERIPHERAL SWELLING
  6. TRAMADOL. [Concomitant]
     Active Substance: TRAMADOL
     Dosage: 4 DRP, QD
     Route: 048
     Dates: start: 20181111, end: 20181111
  7. METAMIZOLE [Concomitant]
     Active Substance: METAMIZOLE
     Dosage: 1000 MG, 8 TIMES A DAY
     Route: 048
     Dates: start: 20181117
  8. LINEZOLID. [Concomitant]
     Active Substance: LINEZOLID
     Indication: PRODUCT USED FOR UNKNOWN INDICATION
     Dosage: 600 G, QD
     Route: 042
     Dates: start: 20180706, end: 20180706
  9. METAMIZOLE SODIUM [Concomitant]
     Active Substance: METAMIZOLE SODIUM
     Dosage: 20 DRP, QD
     Route: 048
     Dates: start: 20180712, end: 20180713
  10. L-THYROXINE [Concomitant]
     Active Substance: LEVOTHYROXINE
     Indication: HYPOTHYROIDISM
     Dosage: 75 MG, QD
     Route: 048
     Dates: start: 20161201
  11. KALINOR [Concomitant]
     Indication: PRODUCT USED FOR UNKNOWN INDICATION
     Dosage: 1 OT, QD
     Route: 048
     Dates: start: 20180705, end: 20180706
  12. METOCLOPRAMIDE. [Concomitant]
     Active Substance: METOCLOPRAMIDE
     Indication: PRODUCT USED FOR UNKNOWN INDICATION
     Dosage: 1 OT, PRN
     Route: 048
     Dates: start: 20180707, end: 20180707
  13. NOVALGIN [Concomitant]
     Dosage: 500 MG, QID
     Route: 048
     Dates: start: 20181023, end: 20181116
  14. PIPERACILLIN. [Concomitant]
     Active Substance: PIPERACILLIN SODIUM
     Dosage: 4 G, TID
     Route: 048
     Dates: start: 20181103
  15. CLEXANE [Concomitant]
     Active Substance: ENOXAPARIN SODIUM
     Indication: MUSCULAR DYSTROPHY
     Dosage: 0.4 ML, QD
     Route: 058
     Dates: start: 20180703
  16. CLEXANE [Concomitant]
     Active Substance: ENOXAPARIN SODIUM
     Indication: GENITAL SWELLING
     Dosage: 0.4 ML, QD
     Route: 058
     Dates: start: 20181102, end: 20181119
  17. SEVREDOL [Concomitant]
     Active Substance: MORPHINE
     Indication: PRODUCT USED FOR UNKNOWN INDICATION
     Dosage: 10 MG, QD
     Route: 048
     Dates: start: 20181118, end: 20181119
  18. METAMIZOLE SODIUM [Concomitant]
     Active Substance: METAMIZOLE SODIUM
     Indication: PERIPHERAL SWELLING
     Dosage: 20 DRP, PRN
     Route: 048
     Dates: start: 20180706, end: 20180709
  19. FRAGMIN P [Concomitant]
     Active Substance: DALTEPARIN SODIUM
     Indication: PRODUCT USED FOR UNKNOWN INDICATION
     Dosage: 1 OT, QD
     Route: 058
     Dates: start: 20180625, end: 20180709
  20. IMIPENEM [Concomitant]
     Active Substance: IMIPENEM
     Indication: PRODUCT USED FOR UNKNOWN INDICATION
     Dosage: 1 G, QD
     Route: 042
     Dates: start: 20180706, end: 20180706
  21. LAXOBERAL [Concomitant]
     Active Substance: SODIUM PICOSULFATE
     Indication: PRODUCT USED FOR UNKNOWN INDICATION
     Dosage: 10 DRP, QD
     Route: 048
     Dates: start: 20180709, end: 20180709
  22. FERRO SANOL [Concomitant]
     Active Substance: FERROUS GLYCINE SULFATE
     Dosage: 1 OT, BID
     Route: 048
     Dates: start: 20180921
  23. CLINDAMYCIN. [Concomitant]
     Active Substance: CLINDAMYCIN
     Dosage: 600 MG, TID
     Route: 048
     Dates: start: 20181103, end: 20181116
  24. HYDROMORPHONE [Concomitant]
     Active Substance: HYDROMORPHONE
     Dosage: 2 MG, BID
     Route: 048
     Dates: start: 20181117, end: 20181118
  25. TRAMADOL. [Concomitant]
     Active Substance: TRAMADOL
     Dosage: 4 DRP, BID
     Route: 048
     Dates: start: 20181110, end: 20181110
  26. MONAPAX [Concomitant]
     Indication: PRODUCT USED FOR UNKNOWN INDICATION
     Dosage: 10 DRP, BID
     Route: 048
     Dates: start: 20180815, end: 20180923
  27. CLINDAMYCIN. [Concomitant]
     Active Substance: CLINDAMYCIN
     Indication: PRODUCT USED FOR UNKNOWN INDICATION
     Dosage: 600 MG, BID
     Route: 048
     Dates: start: 20181102, end: 20181102
  28. TAZOBACTAM [Concomitant]
     Active Substance: TAZOBACTAM
     Dosage: 0.5 MG, BID
     Route: 042
     Dates: start: 20181102, end: 20181102
  29. HYDROMORPHONE [Concomitant]
     Active Substance: HYDROMORPHONE
     Indication: PRODUCT USED FOR UNKNOWN INDICATION
     Dosage: 4 MG, BID
     Route: 048
     Dates: start: 20181114, end: 20181114
  30. TRAMADOL. [Concomitant]
     Active Substance: TRAMADOL
     Dosage: 4 DRP, BID
     Route: 048
     Dates: start: 20181115, end: 20181115
  31. OXYCODONE [Concomitant]
     Active Substance: OXYCODONE
     Indication: PRODUCT USED FOR UNKNOWN INDICATION
     Dosage: 10 MG, BID
     Route: 048
     Dates: start: 20181117
  32. TORASEMIDE [Concomitant]
     Active Substance: TORSEMIDE
     Indication: GENITAL SWELLING
     Dosage: 10 MG, QD
     Route: 048
     Dates: start: 20180704, end: 20180717
  33. TORASEMIDE [Concomitant]
     Active Substance: TORSEMIDE
     Indication: ABDOMINAL DISTENSION
  34. RINGERS SOLUTION [Concomitant]
     Active Substance: CALCIUM CHLORIDE\POTASSIUM CHLORIDE\SODIUM CHLORIDE
     Indication: PRODUCT USED FOR UNKNOWN INDICATION
     Dosage: 100 ML, QD
     Route: 042
     Dates: start: 20181019, end: 20181019
  35. PIPERACILLIN. [Concomitant]
     Active Substance: PIPERACILLIN SODIUM
     Indication: PRODUCT USED FOR UNKNOWN INDICATION
     Dosage: 1 DF, UNK
     Route: 042
     Dates: start: 20180706, end: 20180706
  36. TAZOBACTAM [Concomitant]
     Active Substance: TAZOBACTAM
     Dosage: 0.5 MG, TID
     Route: 042
     Dates: start: 20181102, end: 20181102
  37. PCM [Concomitant]
     Indication: PRODUCT USED FOR UNKNOWN INDICATION
     Dosage: 1 G, QD
     Route: 042
     Dates: start: 20181111, end: 20181111
  38. SEVREDOL [Concomitant]
     Active Substance: MORPHINE
     Dosage: 10 MG, PRN
     Route: 048
     Dates: start: 20181120
  39. METAMIZOLE [Concomitant]
     Active Substance: METAMIZOLE
     Indication: PRODUCT USED FOR UNKNOWN INDICATION
     Dosage: 1000 MG, 8 TIMES A DAY
     Route: 048
     Dates: start: 20181116, end: 20181116
  40. LINEZOLID. [Concomitant]
     Active Substance: LINEZOLID
     Dosage: 600 G, QD
     Route: 042
     Dates: start: 20180707, end: 20180718
  41. IBUPROFEN. [Concomitant]
     Active Substance: IBUPROFEN
     Indication: MUSCULOSKELETAL PAIN
     Dosage: 400 MG, QD
     Route: 048
     Dates: start: 20180626, end: 20180719
  42. MONAPAX [Concomitant]
     Dosage: 10 DRP, BID
     Route: 048
     Dates: start: 20181007
  43. TAFINLAR [Suspect]
     Active Substance: DABRAFENIB MESYLATE
     Indication: METASTATIC MALIGNANT MELANOMA
     Dosage: 75 MG, BID
     Route: 048
     Dates: start: 20180706, end: 20180706
  44. IBUPROFEN. [Concomitant]
     Active Substance: IBUPROFEN
     Indication: ERYTHEMA
  45. IMIPENEM [Concomitant]
     Active Substance: IMIPENEM
     Dosage: 1 G, TID
     Route: 042
     Dates: start: 20180707, end: 20180718
  46. PIPERACILLIN. [Concomitant]
     Active Substance: PIPERACILLIN SODIUM
     Dosage: 4 G, BID
     Route: 048
     Dates: start: 20181102, end: 20181102
  47. TAZOBACTAM [Concomitant]
     Active Substance: TAZOBACTAM
     Indication: PRODUCT USED FOR UNKNOWN INDICATION
     Dosage: 1 DF, UNK
     Route: 042
     Dates: start: 20180706, end: 20180706
  48. TRAMADOL. [Concomitant]
     Active Substance: TRAMADOL
     Indication: PRODUCT USED FOR UNKNOWN INDICATION
     Dosage: 4 DRP, QD
     Route: 048
     Dates: start: 20181109, end: 20181109
  49. TRAMADOL. [Concomitant]
     Active Substance: TRAMADOL
     Dosage: 4 DRP, QD
     Route: 048
     Dates: start: 20181115, end: 20181115
  50. PANTOPRAZOLE [Concomitant]
     Active Substance: PANTOPRAZOLE
     Indication: PRODUCT USED FOR UNKNOWN INDICATION
     Dosage: 40 MG, QD
     Route: 048
     Dates: start: 20180625, end: 20180719
  51. PANTOPRAZOLE [Concomitant]
     Active Substance: PANTOPRAZOLE
     Dosage: 20 MG, QD
     Route: 048
     Dates: start: 20181019, end: 20181021
  52. FERRO SANOL [Concomitant]
     Active Substance: FERROUS GLYCINE SULFATE
     Indication: PRODUCT USED FOR UNKNOWN INDICATION
     Dosage: 1 OT, BID
     Route: 048
     Dates: start: 20180907, end: 20180920
  53. NOVALGIN [Concomitant]
     Indication: PRODUCT USED FOR UNKNOWN INDICATION
     Dosage: 1 G, QID
     Route: 048
     Dates: start: 20181019, end: 20181022
  54. LAVASEPT [Concomitant]
     Indication: PRODUCT USED FOR UNKNOWN INDICATION
     Dosage: 1 DF, QD
     Route: 061
     Dates: start: 20181102, end: 20181116
  55. PIPERACILLIN AND TAZOBACTAM [Concomitant]
     Active Substance: PIPERACILLIN SODIUM\TAZOBACTAM SODIUM
     Indication: PRODUCT USED FOR UNKNOWN INDICATION
     Dosage: 1 OT, BID
     Route: 042
     Dates: start: 20180706, end: 20180706
  56. METAMIZOLE SODIUM [Concomitant]
     Active Substance: METAMIZOLE SODIUM
     Dosage: 20 DRP, BID
     Route: 048
     Dates: start: 20180711, end: 20180711

REACTIONS (18)
  - Metastatic malignant melanoma [Fatal]
  - Blood creatinine increased [Not Recovered/Not Resolved]
  - Axillary pain [Recovered/Resolved]
  - Axillary pain [Not Recovered/Not Resolved]
  - Blood creatine phosphokinase increased [Recovered/Resolved]
  - Metastases to lymph nodes [Recovered/Resolved]
  - Erysipelas [Recovered/Resolved]
  - Multiple organ dysfunction syndrome [Fatal]
  - Haemorrhoidal haemorrhage [Recovered/Resolved]
  - Blood creatinine increased [Recovered/Resolved]
  - Pyrexia [Recovered/Resolved]
  - Malignant neoplasm progression [Fatal]
  - Fall [Unknown]
  - Haemorrhoidal haemorrhage [Recovered/Resolved]
  - Lip swelling [Unknown]
  - Blood creatine phosphokinase increased [Recovered/Resolved]
  - Pyrexia [Recovered/Resolved]
  - Concomitant disease aggravated [Not Recovered/Not Resolved]

NARRATIVE: CASE EVENT DATE: 20180801
